FAERS Safety Report 6933919-8 (Version None)
Quarter: 2010Q3

REPORT INFORMATION
  Report Type: 
  Country: None (occurrence: None)
  Receive Date: 20100820
  Receipt Date: 20100812
  Transmission Date: 20110219
  Serious: Yes (Life-Threatening, Hospitalization)
  Sender: FDA-Public Use
  Company Number: DE-ROCHE-721097

PATIENT
  Age: 75 Year
  Sex: Male
  Weight: 74 kg

DRUGS (6)
  1. AVASTIN [Suspect]
     Dosage: ROUTE: INTRAVENOUS (NOS), CUMULATIVE DOSE: 3650 MG
     Route: 042
     Dates: start: 20090914, end: 20100208
  2. MEDOXA [Suspect]
     Dosage: ROUTE: INTRAVENOUS (NOS),CUMULATIVE DOSE: 1458 MG
     Route: 042
     Dates: start: 20090914, end: 20100208
  3. LEUCOVORIN CALCIUM [Concomitant]
     Dosage: ROUTE: INTRAVENOUS (NOS), BREAK DURATION: 09 FEB 2010- 28 MAR 2010, CUMULATIVE DOSE: 3840 MG
     Route: 042
     Dates: start: 20090914
  4. FLUOROURACIL [Concomitant]
     Dosage: ROUTE: INTRAVENOUS (NOS), BREAK DURATION: 09 FEB 2010- 28 MAR 2010, CUMULATIVE DOSE: 44352 MG
     Route: 042
     Dates: start: 20090914
  5. ZOFRAN [Concomitant]
     Dosage: ROUTE: INTRAVENOUS (NOS), BREAK DURATION: 09 FEB 2010-11 APR 2010, CUMULATIVE DOSE: 80 MG
     Route: 042
     Dates: start: 20090914
  6. DEXAMETHASONE TAB [Concomitant]
     Dosage: ROUTE: INTRAVENOUS (NOS), CUMULATIVE DOSE:80 MG
     Route: 042
     Dates: start: 20090914, end: 20100208

REACTIONS (2)
  - ANAPHYLACTIC REACTION [None]
  - RENAL FAILURE ACUTE [None]
